FAERS Safety Report 26168485 (Version 1)
Quarter: 2025Q4

REPORT INFORMATION
  Report Type: Spontaneous
  Country: US (occurrence: US)
  Receive Date: 20251217
  Receipt Date: 20251217
  Transmission Date: 20260118
  Serious: No
  Sender: ELI LILLY AND COMPANY
  Company Number: US-ELI_LILLY_AND_COMPANY-US202512010806

PATIENT
  Age: 71 Year
  Sex: Male

DRUGS (3)
  1. ZEPBOUND [Suspect]
     Active Substance: TIRZEPATIDE
     Indication: Weight control
     Dosage: 2.5 MG, UNKNOWN
     Route: 058
     Dates: start: 20250321
  2. ZEPBOUND [Suspect]
     Active Substance: TIRZEPATIDE
     Dosage: UNK UNK, UNKNOWN HALF DOSE OF 2.5 MG
     Route: 058
  3. ZEPBOUND [Suspect]
     Active Substance: TIRZEPATIDE
     Dosage: 2.5 MG, UNKNOWN
     Route: 058

REACTIONS (3)
  - Intentional underdose [Unknown]
  - Blood glucose increased [Unknown]
  - Influenza [Unknown]

NARRATIVE: CASE EVENT DATE: 20250801
